FAERS Safety Report 9574879 (Version 2)
Quarter: 2013Q4

REPORT INFORMATION
  Report Type: Report from Study
  Country: US (occurrence: US)
  Receive Date: 20131001
  Receipt Date: 20131107
  Transmission Date: 20140711
  Serious: Yes (Hospitalization)
  Sender: FDA-Public Use
  Company Number: US-ROCHE-1278792

PATIENT
  Age: 46 Year
  Sex: Female
  Weight: 93 kg

DRUGS (12)
  1. TRASTUZUMAB [Suspect]
     Indication: HER-2 POSITIVE BREAST CANCER
     Dosage: LOADING DOSE
     Route: 042
     Dates: start: 20130710
  2. TRASTUZUMAB [Suspect]
     Dosage: MAINTENANCE DOSE.?LAST DOSE PRIOR TO SAE: 04/SEP/2013
     Route: 042
  3. PACLITAXEL [Suspect]
     Indication: HER-2 POSITIVE BREAST CANCER
     Dosage: LAST DOSE PRIOR TO SAE: 04/SEP/2013
     Route: 042
     Dates: start: 20130710
  4. DIHYDROERGOTAMINE [Concomitant]
     Route: 065
     Dates: start: 20111005
  5. ESCITALOPRAM [Concomitant]
     Route: 065
     Dates: start: 20110824
  6. HYDROXYZINE [Concomitant]
     Route: 065
     Dates: start: 20111005
  7. LEVOTHYROXINE [Concomitant]
     Route: 065
     Dates: start: 20110824
  8. NAPROXEN [Concomitant]
     Route: 065
     Dates: start: 20110824
  9. NORTRIPTYLINE [Concomitant]
     Route: 065
     Dates: start: 20130211
  10. TOPIRAMATE [Concomitant]
     Route: 065
     Dates: start: 20110824
  11. ZOLPIDEM [Concomitant]
     Route: 065
     Dates: start: 20111208
  12. PLACEBO [Suspect]
     Indication: HER-2 POSITIVE BREAST CANCER
     Dosage: LAST DOSE PRIOR TO SAE: 04/SEP/2013
     Route: 042
     Dates: start: 20130710

REACTIONS (1)
  - Syncope [Recovered/Resolved]
